FAERS Safety Report 5220012-8 (Version None)
Quarter: 2007Q1

REPORT INFORMATION
  Report Type: 
  Country: None (occurrence: None)
  Receive Date: 20070124
  Receipt Date: 20070124
  Transmission Date: 20070707
  Serious: Yes (Hospitalization)
  Sender: FDA-Public Use
  Company Number: None

PATIENT
  Age: 73 Year
  Sex: Male
  Weight: 143.3 kg

DRUGS (1)
  1. ROSUVASTATIN [Suspect]

REACTIONS (2)
  - MUSCULAR WEAKNESS [None]
  - MYOPATHY [None]
